FAERS Safety Report 22304084 (Version 2)
Quarter: 2023Q2

REPORT INFORMATION
  Report Type: Report from Study
  Country: RO (occurrence: RO)
  Receive Date: 20230510
  Receipt Date: 20230523
  Transmission Date: 20230721
  Serious: Yes (Other)
  Sender: FDA-Public Use
  Company Number: RO-002147023-NVSC2023RO098256

PATIENT

DRUGS (5)
  1. RUXOLITINIB [Suspect]
     Active Substance: RUXOLITINIB
     Indication: Myelofibrosis
     Dosage: 20 MG, BID
     Route: 048
     Dates: start: 2017
  2. RUXOLITINIB [Suspect]
     Active Substance: RUXOLITINIB
     Indication: Secondary immunodeficiency
  3. HYDREA [Concomitant]
     Active Substance: HYDROXYUREA
     Indication: Leukaemia
     Dosage: UNK (3X/DAY, 3 DAYS A WEEK)
     Route: 065
     Dates: start: 2019
  4. TROMBEX [CLOPIDOGREL BISULFATE] [Concomitant]
     Indication: Nervous system disorder
     Dosage: UNK
     Route: 065
  5. VIMOVO [Concomitant]
     Active Substance: ESOMEPRAZOLE MAGNESIUM\NAPROXEN
     Indication: Nervous system disorder
     Dosage: UNK
     Route: 065

REACTIONS (6)
  - Hypertension [Not Recovered/Not Resolved]
  - Hepatic cirrhosis [Unknown]
  - Dizziness [Not Recovered/Not Resolved]
  - Product use in unapproved indication [Not Recovered/Not Resolved]
  - Anaemia [Not Recovered/Not Resolved]
  - Thrombocytopenia [Unknown]

NARRATIVE: CASE EVENT DATE: 20170101
